FAERS Safety Report 7447189-8 (Version None)
Quarter: 2011Q2

REPORT INFORMATION
  Report Type: 
  Country: None (occurrence: None)
  Receive Date: 20110429
  Receipt Date: 20101123
  Transmission Date: 20111010
  Serious: No
  Sender: FDA-Public Use
  Company Number: US-ASTRAZENECA-2010SE55883

PATIENT
  Age: 86 Year
  Sex: Female

DRUGS (4)
  1. NEXIUM [Suspect]
     Indication: ABDOMINAL PAIN
     Route: 048
  2. CARVEDILOL [Concomitant]
  3. LISINOPRIL [Concomitant]
  4. HECTOROL [Concomitant]

REACTIONS (5)
  - ABDOMINAL DISTENSION [None]
  - DYSPNOEA [None]
  - CONSTIPATION [None]
  - CHOKING [None]
  - CHEST PAIN [None]
